FAERS Safety Report 8535063-5 (Version None)
Quarter: 2012Q3

REPORT INFORMATION
  Report Type: 
  Country: None (occurrence: None)
  Receive Date: 20120724
  Receipt Date: 20120720
  Transmission Date: 20120928
  Serious: Yes (Death)
  Sender: FDA-Public Use
  Company Number: IT-PFIZER INC-2012149262

PATIENT
  Age: 78 Year
  Sex: Female

DRUGS (7)
  1. FLUCONAZOLE [Concomitant]
     Dosage: 100 MG, UNK
     Dates: start: 20120509
  2. PREGABALIN [Concomitant]
  3. ATORVASTATIN [Concomitant]
  4. TYGACIL [Suspect]
     Indication: PNEUMONIA
     Dosage: 100 MG, 1X/DAY
     Route: 042
     Dates: start: 20120506, end: 20120518
  5. DILTIAZEM [Concomitant]
  6. MERREM [Concomitant]
     Dosage: 1 G, UNK
     Route: 042
     Dates: start: 20120509
  7. ALLOPURINOL [Concomitant]
     Dosage: 300 MG, UNK
     Route: 048

REACTIONS (1)
  - HEPATITIS ACUTE [None]
